FAERS Safety Report 6288144-3 (Version None)
Quarter: 2009Q3

REPORT INFORMATION
  Report Type: 
  Country: None (occurrence: None)
  Receive Date: 20090729
  Receipt Date: 20080925
  Transmission Date: 20100115
  Serious: No
  Sender: FDA-Public Use
  Company Number: A0749461A

PATIENT
  Age: 9 Year
  Sex: Female

DRUGS (2)
  1. ZANTAC [Suspect]
     Dosage: 75MG VARIABLE DOSE
     Route: 048
     Dates: start: 20080301, end: 20080701
  2. NO CONCURRENT MEDICATION [Concomitant]

REACTIONS (1)
  - EPISTAXIS [None]
